FAERS Safety Report 25917962 (Version 1)
Quarter: 2025Q4

REPORT INFORMATION
  Report Type: Spontaneous
  Country: US (occurrence: US)
  Receive Date: 20251014
  Receipt Date: 20251014
  Transmission Date: 20260117
  Serious: No
  Sender: Kenvue
  Company Number: US-KENVUE-20250904241

PATIENT
  Age: 41 Year
  Sex: Female

DRUGS (2)
  1. WOMENS ROGAINE UNSCENTED [Suspect]
     Active Substance: MINOXIDIL
     Indication: Alopecia
     Dosage: NOT MUCH. JUST ENOUGH TO GET THE ROOTS OF MY HAIR, ONCE A DAY
     Route: 061
     Dates: start: 20250614, end: 2025
  2. WOMENS ROGAINE UNSCENTED [Suspect]
     Active Substance: MINOXIDIL
     Dosage: NOT MUCH. JUST ENOUGH TO GET THE ROOTS OF MY HAIR, ONCE A DAY
     Route: 061
     Dates: start: 20250710, end: 2025

REACTIONS (4)
  - Hair texture abnormal [Recovering/Resolving]
  - Trichorrhexis [Recovering/Resolving]
  - Hair injury [Recovering/Resolving]
  - Incorrect dose administered [Unknown]

NARRATIVE: CASE EVENT DATE: 20250614
